FAERS Safety Report 7216997-0 (Version None)
Quarter: 2011Q1

REPORT INFORMATION
  Report Type: 
  Country: None (occurrence: None)
  Receive Date: 20110110
  Receipt Date: 20101011
  Transmission Date: 20110831
  Serious: No
  Sender: FDA-Public Use
  Company Number: A0885894A

PATIENT
  Age: 76 Year
  Sex: Female

DRUGS (9)
  1. SINEMET [Concomitant]
  2. TOPROL-XL [Concomitant]
  3. LIPITOR [Concomitant]
  4. TYLENOL-500 [Concomitant]
  5. EFFEXOR XR [Concomitant]
  6. LEVOTHYROXINE SODIUM [Concomitant]
  7. SEROQUEL [Concomitant]
  8. REQUIP XL [Suspect]
     Indication: PARKINSON'S DISEASE
     Dosage: 8MG VARIABLE DOSE
     Route: 048
     Dates: start: 20091013
  9. ASPIRIN [Concomitant]

REACTIONS (2)
  - MEDICATION RESIDUE [None]
  - DRUG INEFFECTIVE [None]
